FAERS Safety Report 13721256 (Version 2)
Quarter: 2017Q3

REPORT INFORMATION
  Report Type: Spontaneous
  Country: DE (occurrence: DE)
  Receive Date: 20170706
  Receipt Date: 20170823
  Transmission Date: 20171127
  Serious: Yes (Hospitalization, Disabling, Other)
  Sender: FDA-Public Use
  Company Number: DE-GLENMARK PHARMACEUTICALS-2017GMK028055

PATIENT

DRUGS (7)
  1. INDAPAMID [Concomitant]
     Active Substance: INDAPAMIDE
     Indication: PRODUCT USED FOR UNKNOWN INDICATION
     Dosage: UNK
     Route: 065
     Dates: end: 20160727
  2. RAMIPRIL. [Concomitant]
     Active Substance: RAMIPRIL
     Indication: HYPERTENSION
     Dosage: UNK
     Route: 065
     Dates: end: 20160727
  3. CLOPIDOGREL [Concomitant]
     Active Substance: CLOPIDOGREL BISULFATE
     Indication: PRODUCT USED FOR UNKNOWN INDICATION
     Dosage: UNK
     Route: 065
  4. INEGY [Concomitant]
     Active Substance: EZETIMIBE\SIMVASTATIN
     Indication: BLOOD CHOLESTEROL INCREASED
     Dosage: UNK
     Route: 065
  5. TELMISARTAN GLENMARK GENERICS 20MG FILMTABLETTEN [Suspect]
     Active Substance: TELMISARTAN
     Indication: HYPERTENSION
     Dosage: 1 DF, BID (20 MG IN MORNING AND 20 MG IN EVENING)
     Route: 048
     Dates: start: 20160804, end: 20161005
  6. AMLODIPIN                          /00972401/ [Concomitant]
     Active Substance: AMLODIPINE BESYLATE
     Indication: HYPERTONIA
     Dosage: UNK
     Route: 065
  7. TELMISARTAN GLENMARK GENERICS 40MG FILMTABLETTEN [Suspect]
     Active Substance: TELMISARTAN
     Indication: HAEMATOMA
     Dosage: 2 DF, BID (40 MG IN MORNING AND 40MG IN EVENING)
     Route: 048
     Dates: start: 20161006

REACTIONS (9)
  - Cerebral haemorrhage [Recovering/Resolving]
  - Condition aggravated [Unknown]
  - Aphasia [Unknown]
  - Product use in unapproved indication [Unknown]
  - Weight decreased [Recovered/Resolved]
  - Malaise [Unknown]
  - Gait disturbance [Unknown]
  - Musculoskeletal disorder [Recovering/Resolving]
  - Epilepsy [Unknown]

NARRATIVE: CASE EVENT DATE: 20160811
